FAERS Safety Report 16201331 (Version 1)
Quarter: 2019Q2

REPORT INFORMATION
  Report Type: Other
  Country: CN (occurrence: CN)
  Receive Date: 20190416
  Receipt Date: 20190416
  Transmission Date: 20190711
  Serious: Yes (Hospitalization)
  Sender: FDA-Public Use
  Company Number: CN-JIANGSU HENGRUI MEDICINE CO., LTD.-2065879

PATIENT
  Age: 27 Year
  Sex: Female
  Weight: 49 kg

DRUGS (5)
  1. SEVOFLURANE USP, 100%, LIQUID FOR INHALATION [Suspect]
     Active Substance: SEVOFLURANE
     Indication: ANAESTHESIA
     Route: 055
     Dates: start: 20190222, end: 20190222
  2. ATRACURIUM BESYLATE. [Suspect]
     Active Substance: ATRACURIUM BESYLATE
     Route: 040
     Dates: start: 20190222, end: 20190222
  3. FENTANYL CITRATE. [Suspect]
     Active Substance: FENTANYL CITRATE
     Route: 040
     Dates: start: 20190222, end: 20190222
  4. PROPOFOL. [Suspect]
     Active Substance: PROPOFOL
     Route: 040
     Dates: start: 20190222, end: 20190222
  5. STERILE WATER [Concomitant]
     Active Substance: WATER
     Route: 040
     Dates: start: 20190222, end: 20190222

REACTIONS (1)
  - Nausea [Recovered/Resolved]

NARRATIVE: CASE EVENT DATE: 20190222
